FAERS Safety Report 10400408 (Version 1)
Quarter: 2014Q3

REPORT INFORMATION
  Report Type: Spontaneous
  Country: US (occurrence: US)
  Receive Date: 20140821
  Receipt Date: 20140821
  Transmission Date: 20150326
  Serious: No
  Sender: FDA-Public Use
  Company Number: US-ASTRAZENECA-2013SE90219

PATIENT
  Sex: Female

DRUGS (20)
  1. FISH OIL [Concomitant]
     Active Substance: FISH OIL
  2. PANTOPRAZOLE [Concomitant]
     Active Substance: PANTOPRAZOLE SODIUM
     Indication: GASTROOESOPHAGEAL REFLUX DISEASE
     Dates: start: 20130809
  3. ASPIRIN EC [Concomitant]
     Active Substance: ASPIRIN
     Route: 048
  4. SYMBICORT [Suspect]
     Active Substance: BUDESONIDE\FORMOTEROL FUMARATE DIHYDRATE
     Route: 055
  5. LYRICA [Concomitant]
     Active Substance: PREGABALIN
     Indication: FIBROMYALGIA
     Dosage: TWO MORNING, TWO IN THE AFTERNOON AND THREE AT NIGHT
     Dates: start: 20131111
  6. ADIPEX-P [Concomitant]
     Active Substance: PHENTERMINE HYDROCHLORIDE
     Indication: OBESITY
     Dosage: 1/2 OR 1 TABLET ONCE DAILY IN THE MORNING
     Dates: start: 20131104
  7. LOPERAMIDE [Concomitant]
     Active Substance: LOPERAMIDE
     Route: 048
  8. HYDROCODONE ACETAMINOPHEN [Concomitant]
     Active Substance: ACETAMINOPHEN\HYDROCODONE BITARTRATE
     Indication: PAIN
     Dosage: 7.5-325 MG, 1/2 TABLET EVERY FOUR HOURS AS NEEDED
     Dates: start: 20131105
  9. CALCIUM [Concomitant]
     Active Substance: CALCIUM
     Dosage: 600/500 IU D TWO DAILY IN THE MORNING
  10. CYANOCOBALAMIN. [Concomitant]
     Active Substance: CYANOCOBALAMIN
     Route: 048
  11. LORTAB [Concomitant]
     Active Substance: ACETAMINOPHEN\HYDROCODONE BITARTRATE
     Indication: FIBROMYALGIA
     Dosage: 7.5-500 MG, 1/2 TABLET EVERY FOUR HOURS AS NEEDED (2 1/2 TABLETS)
     Dates: start: 20131104
  12. LORTAB [Concomitant]
     Active Substance: ACETAMINOPHEN\HYDROCODONE BITARTRATE
     Indication: PAIN
     Dosage: 7.5-500 MG, 1/2 TABLET EVERY FOUR HOURS AS NEEDED (2 1/2 TABLETS)
     Dates: start: 20131104
  13. ALPRAZOLAM. [Concomitant]
     Active Substance: ALPRAZOLAM
     Indication: NERVOUSNESS
     Dosage: 1/2-1 TABLETS THREE TIMES DAILY
     Dates: start: 20131104
  14. GABAPENTIN. [Concomitant]
     Active Substance: GABAPENTIN
     Indication: FIBROMYALGIA
     Dosage: 1-2 CAPSULE THREE TIMES DAILY AS NEEDED
     Dates: start: 20131105
  15. LISINOPRIL/ HYDROCHLOROTHIAZIDE [Concomitant]
     Indication: BLOOD PRESSURE INCREASED
     Dosage: 20-25 MG, 1 TABLET DAILY
     Dates: start: 20130705
  16. PROMETHAZINE HCL [Concomitant]
     Active Substance: PROMETHAZINE HYDROCHLORIDE
     Indication: NAUSEA
     Dosage: 1/2 TABLET FOUR TIMES DAILY, AS NEEDED
     Dates: start: 20130306
  17. ALPRAZOLAM. [Concomitant]
     Active Substance: ALPRAZOLAM
     Indication: ANXIETY
     Dosage: 1/2-1 TABLETS THREE TIMES DAILY
     Dates: start: 20131104
  18. ADIPEX-P [Concomitant]
     Active Substance: PHENTERMINE HYDROCHLORIDE
     Indication: INCREASED APPETITE
     Dosage: 1/2 OR 1 TABLET ONCE DAILY IN THE MORNING
     Dates: start: 20131104
  19. HYDROCODONE ACETAMINOPHEN [Concomitant]
     Active Substance: ACETAMINOPHEN\HYDROCODONE BITARTRATE
     Indication: FIBROMYALGIA
     Dosage: 7.5-325 MG, 1/2 TABLET EVERY FOUR HOURS AS NEEDED
     Dates: start: 20131105
  20. PROVENTIL HFA [Concomitant]
     Active Substance: ALBUTEROL SULFATE
     Indication: WHEEZING
     Dosage: 108(90 BASE) MCG, 2 PUFFS INHALATION EVERY FOUR HOURS AS NEEDED
     Route: 055

REACTIONS (2)
  - Mouth ulceration [Unknown]
  - Drug hypersensitivity [Unknown]
